FAERS Safety Report 9188883 (Version 15)
Quarter: 2014Q1

REPORT INFORMATION
  Report Type: Report from Study
  Country: TR (occurrence: TR)
  Receive Date: 20130326
  Receipt Date: 20140303
  Transmission Date: 20141002
  Serious: Yes (Hospitalization)
  Sender: FDA-Public Use
  Company Number: TR-009507513-1303TUR011658

PATIENT
  Age: 47 Year
  Sex: Female
  Weight: 53 kg

DRUGS (10)
  1. BOCEPREVIR [Suspect]
     Indication: CHRONIC HEPATITIS C
     Dosage: 4 DF, TID, STRENTH-200 MG
     Route: 048
     Dates: start: 20130117
  2. RIBAVIRIN [Suspect]
     Indication: CHRONIC HEPATITIS C
     Dosage: 3 DF, QPM
     Route: 048
     Dates: start: 20121212
  3. RIBAVIRIN [Suspect]
     Dosage: 2 DF, QAM
     Route: 048
     Dates: start: 20121212
  4. RIBAVIRIN [Suspect]
     Dosage: UNK
  5. PEGINTERFERON ALFA-2A [Suspect]
     Indication: CHRONIC HEPATITIS C
     Dosage: 180 MICROGRAM, QW
     Route: 058
     Dates: start: 20121212
  6. CANDESARTAN CILEXETIL [Concomitant]
     Indication: CARDIOVASCULAR DISORDER
     Dosage: 8 MG, QD
     Route: 048
     Dates: start: 200601, end: 20130319
  7. PAROL [Concomitant]
     Indication: PAIN PROPHYLAXIS
     Dosage: TOTAL DAILY DOSE 500 MG, PRN
     Route: 048
     Dates: start: 20121212
  8. PAROL [Concomitant]
     Indication: PYREXIA
  9. PAROL [Concomitant]
     Indication: PROPHYLAXIS
  10. RABEPRAZOLE SODIUM [Concomitant]
     Indication: ABDOMINAL PAIN UPPER
     Dosage: 40 MG, QD
     Route: 048
     Dates: start: 20130201, end: 20130603

REACTIONS (1)
  - Salmonellosis [Recovered/Resolved]
